FAERS Safety Report 4397588-6 (Version None)
Quarter: 2004Q3

REPORT INFORMATION
  Report Type: 
  Country: None (occurrence: None)
  Receive Date: 20040708
  Receipt Date: 20040622
  Transmission Date: 20050211
  Serious: Yes (Hospitalization)
  Sender: FDA-Public Use
  Company Number: STA-AE-04-MTX-202

PATIENT
  Age: 72 Year
  Sex: Male

DRUGS (4)
  1. METHOTREXATE [Suspect]
     Indication: PSORIATIC ARTHROPATHY
     Dosage: 20 MG 1X PER WK, ORAL
     Route: 048
     Dates: start: 19971105, end: 20040501
  2. ENBREL [Suspect]
     Indication: PSORIATIC ARTHROPATHY
     Dosage: 20MG 2 X PER 1 WK, SC
     Route: 058
     Dates: start: 20040331, end: 20040501
  3. DEFLAZACORT (DEFLAZACORT) [Concomitant]
  4. ARAVA [Concomitant]

REACTIONS (6)
  - BONE MARROW DEPRESSION [None]
  - FUNGAL INFECTION [None]
  - MUCOSAL INFLAMMATION [None]
  - PANCYTOPENIA [None]
  - PHARYNGITIS [None]
  - RECTAL HAEMORRHAGE [None]
